FAERS Safety Report 13747467 (Version 2)
Quarter: 2018Q1

REPORT INFORMATION
  Report Type: Report from Study
  Country: US (occurrence: US)
  Receive Date: 20170712
  Receipt Date: 20180120
  Transmission Date: 20180508
  Serious: No
  Sender: FDA-Public Use
  Company Number: GXBR2017US001941

PATIENT
  Sex: Female

DRUGS (1)
  1. OMNITROPE [Suspect]
     Active Substance: SOMATROPIN
     Indication: GROWTH HORMONE DEFICIENCY
     Dosage: UNK DF, UNK
     Route: 058
     Dates: start: 201607

REACTIONS (2)
  - Drug administered in wrong device [Recovered/Resolved]
  - Incorrect dose administered [Recovered/Resolved]
